FAERS Safety Report 17616655 (Version 4)
Quarter: 2021Q4

REPORT INFORMATION
  Report Type: Report from Study
  Country: US (occurrence: US)
  Receive Date: 20200402
  Receipt Date: 20211029
  Transmission Date: 20220303
  Serious: Yes (Hospitalization, Other)
  Sender: FDA-Public Use
  Company Number: US-SA-2020SA081281

PATIENT
  Age: 17 Year
  Sex: Female

DRUGS (12)
  1. DUPIXENT [Suspect]
     Active Substance: DUPILUMAB
     Indication: Asthma
     Dosage: 600 MG, 1X
     Route: 058
     Dates: start: 20191213, end: 20191213
  2. DUPIXENT [Suspect]
     Active Substance: DUPILUMAB
     Dosage: 300 MG, QOW
     Route: 058
     Dates: start: 202001
  3. FLONASE ALLERGY RELIEF [Concomitant]
     Active Substance: FLUTICASONE PROPIONATE
  4. AZELASTINE HYDROCHLORIDE [Concomitant]
     Active Substance: AZELASTINE HYDROCHLORIDE
     Dosage: 137 UG
  5. SINGULAIR [Concomitant]
     Active Substance: MONTELUKAST SODIUM
     Dosage: 10MG
  6. CLARITIN [Concomitant]
     Active Substance: LORATADINE
     Dosage: 10MG
  7. ICY HOT (MENTHOL) [Concomitant]
     Active Substance: MENTHOL
     Dosage: 16 %
  8. ADVAIR HFA [Concomitant]
     Active Substance: FLUTICASONE PROPIONATE\SALMETEROL XINAFOATE
  9. CALTRATE + D PLUS [Concomitant]
  10. IBUPROFEN [Concomitant]
     Active Substance: IBUPROFEN
  11. TYLENOL [Concomitant]
     Active Substance: ACETAMINOPHEN
  12. VENTOLIN HFA [Concomitant]
     Active Substance: ALBUTEROL SULFATE
     Dosage: VENTOLIN HFA 90 MCG HFA AER AD

REACTIONS (5)
  - Pneumonia [Unknown]
  - Pneumonia bacterial [Unknown]
  - Staphylococcal infection [Unknown]
  - Dyspnoea [Unknown]
  - Product use issue [Unknown]

NARRATIVE: CASE EVENT DATE: 20191213
